FAERS Safety Report 16062226 (Version 1)
Quarter: 2019Q1

REPORT INFORMATION
  Report Type: Spontaneous
  Country: US (occurrence: US)
  Receive Date: 20190312
  Receipt Date: 20190312
  Transmission Date: 20190418
  Serious: Yes (Other)
  Sender: FDA-Public Use
  Company Number: US-GLAXOSMITHKLINE-US2019GSK044629

PATIENT
  Sex: Male

DRUGS (1)
  1. PREVACID [Suspect]
     Active Substance: LANSOPRAZOLE
     Indication: GASTROOESOPHAGEAL REFLUX DISEASE
     Dosage: 30 MG, UNK
     Route: 065

REACTIONS (12)
  - Renal injury [Unknown]
  - Renal cyst [Unknown]
  - Urinary retention [Unknown]
  - Incontinence [Unknown]
  - Nephrotic syndrome [Unknown]
  - Dysuria [Unknown]
  - Pollakiuria [Unknown]
  - Chronic kidney disease-mineral and bone disorder [Unknown]
  - Acute kidney injury [Unknown]
  - Proteinuria [Unknown]
  - Chronic kidney disease [Unknown]
  - Haematuria [Unknown]
